FAERS Safety Report 6555617-5 (Version None)
Quarter: 2010Q1

REPORT INFORMATION
  Report Type: 
  Country: None (occurrence: None)
  Receive Date: 20100125
  Receipt Date: 20100108
  Transmission Date: 20100710
  Serious: Yes (Other)
  Sender: FDA-Public Use
  Company Number: 483010

PATIENT
  Age: 50 Year
  Sex: Female

DRUGS (14)
  1. VANCOMYCIN [Suspect]
     Indication: EYE IRRIGATION
     Dosage: 10 MG, OPHTHALMIC
     Route: 047
     Dates: start: 20070505, end: 20070505
  2. (ADRENALINE /00003901/) [Suspect]
     Indication: EYE IRRIGATION
     Dosage: .3 ML INTRAOCULAR
     Route: 031
     Dates: start: 20070505, end: 20070505
  3. BETAMETHASONE [Suspect]
     Dosage: OPHTHALMIC
     Route: 047
     Dates: start: 20070505, end: 20070505
  4. CYCLOPENTOLATE HCL [Suspect]
     Dosage: 1 DF, 1% STRENGTH, INTRAOCULAR
     Route: 031
     Dates: start: 20070505, end: 20070505
  5. (PROXYMETACAINE) [Suspect]
     Indication: PERIOPERATIVE ANALGESIA
     Dates: start: 20070530, end: 20070530
  6. (HYALURONATE SODIUM) [Suspect]
     Indication: ANALGESIC THERAPY
     Dosage: OPHTHALMIC
     Route: 047
     Dates: start: 20070505, end: 20070505
  7. LIDOCAINE [Suspect]
     Indication: ANAESTHESIA
     Dosage: OPHTHALMIC
     Route: 047
     Dates: start: 20070505, end: 20070505
  8. LIDOCAINE [Suspect]
     Indication: CATARACT OPERATION
     Dosage: OPHTHALMIC
     Route: 047
     Dates: start: 20070505, end: 20070505
  9. LIDOCAINE [Suspect]
     Indication: ANAESTHESIA
     Dosage: OPHTHALMIC
     Route: 047
     Dates: start: 20070505, end: 20070505
  10. LIDOCAINE [Suspect]
     Indication: CATARACT OPERATION
     Dosage: OPHTHALMIC
     Route: 047
     Dates: start: 20070505, end: 20070505
  11. NEOMYCIN [Concomitant]
     Indication: POSTOPERATIVE CARE
     Dosage: OPHTHALMIC
     Route: 047
     Dates: start: 20070505, end: 20070505
  12. OCUFEN [Suspect]
     Indication: PREOPERATIVE CARE
     Dosage: 0.03%, OPHTHALMIC
     Route: 047
     Dates: start: 20070505, end: 20070505
  13. PHENYLEPHRINE HCL [Suspect]
     Indication: CATARACT OPERATION
     Dosage: 1DF, 2.5% STRENGTH  OPHTHALMIC
     Route: 047
     Dates: start: 20070505, end: 20070505
  14. POVIDONE IODINE [Suspect]
     Indication: CATARACT OPERATION
     Dosage: OPHTHALMIC
     Route: 048
     Dates: start: 20070505, end: 20070505

REACTIONS (1)
  - TOXIC ANTERIOR SEGMENT SYNDROME [None]
